FAERS Safety Report 5410513-1 (Version None)
Quarter: 2007Q3

REPORT INFORMATION
  Report Type: 
  Country: None (occurrence: None)
  Receive Date: 20070810
  Receipt Date: 20070202
  Transmission Date: 20080115
  Serious: No
  Sender: FDA-Public Use
  Company Number: A0638153A

PATIENT
  Age: 69 Year
  Sex: Female

DRUGS (6)
  1. PAXIL [Suspect]
     Indication: ANXIETY DISORDER
     Dosage: 30MG PER DAY
     Route: 048
     Dates: end: 20070119
  2. PAROXETINE [Suspect]
     Indication: ANXIETY DISORDER
     Dosage: 30MG PER DAY
     Route: 048
     Dates: start: 20060101
  3. PREMARIN [Concomitant]
  4. GABAPENTIN [Concomitant]
  5. AMITRIPTYLINE HCL [Concomitant]
  6. ALPRAZOLAM [Concomitant]

REACTIONS (2)
  - ANXIETY [None]
  - DRUG INEFFECTIVE [None]
